FAERS Safety Report 9912208 (Version 1)
Quarter: 2014Q1

REPORT INFORMATION
  Report Type: Report from Study
  Country: US (occurrence: US)
  Receive Date: 20140220
  Receipt Date: 20140220
  Transmission Date: 20141002
  Serious: Yes (Hospitalization)
  Sender: FDA-Public Use
  Company Number: US-BRISTOL-MYERS SQUIBB COMPANY-20173217

PATIENT
  Sex: 0

DRUGS (16)
  1. ARIPIPRAZOLE [Suspect]
     Indication: DEPRESSION
     Dates: start: 20130826
  2. AMLODIPINE [Concomitant]
  3. ASPIRIN [Concomitant]
  4. FLUOXETINE [Concomitant]
  5. FOLIC ACID [Concomitant]
  6. FUROSEMIDE [Concomitant]
  7. GABAPENTIN [Concomitant]
  8. INSULIN DETEMIR [Concomitant]
     Dosage: INSULIN REG HUMAN
  9. LISINOPRIL [Concomitant]
  10. MAGNESIUM OXIDE [Concomitant]
  11. METOPROLOL TARTRATE [Concomitant]
  12. POTASSIUM CHLORIDE [Concomitant]
  13. SIMVASTATIN [Concomitant]
  14. TEMAZEPAM [Concomitant]
  15. VITAMIN B COMPLEX [Concomitant]
  16. HYDROCODONE + ACETAMINOPHEN [Concomitant]

REACTIONS (3)
  - Mental status changes [Recovered/Resolved]
  - Hypoxia [Unknown]
  - Urinary incontinence [Unknown]
